APPROVED DRUG PRODUCT: CLONIDINE HYDROCHLORIDE
Active Ingredient: CLONIDINE HYDROCHLORIDE
Strength: 0.1MG
Dosage Form/Route: TABLET;ORAL
Application: A070395 | Product #001
Applicant: WATSON LABORATORIES INC
Approved: Mar 23, 1987 | RLD: No | RS: No | Type: DISCN